FAERS Safety Report 4560662-5 (Version None)
Quarter: 2005Q1

REPORT INFORMATION
  Report Type: 
  Country: None (occurrence: None)
  Receive Date: 20050121
  Receipt Date: 20050112
  Transmission Date: 20050727
  Serious: No
  Sender: FDA-Public Use
  Company Number: 2005SE00034

PATIENT
  Age: 43 Year
  Sex: Female

DRUGS (2)
  1. XYLOCAINE [Suspect]
     Indication: LOCAL ANAESTHESIA
     Dates: start: 20041209, end: 20041209
  2. RAPIFEN [Concomitant]

REACTIONS (11)
  - ANAESTHETIC COMPLICATION [None]
  - CHEST DISCOMFORT [None]
  - DEAFNESS [None]
  - DRUG TOXICITY [None]
  - HYPOAESTHESIA ORAL [None]
  - PAIN [None]
  - PHARMACEUTICAL PRODUCT COMPLAINT [None]
  - PHOTOPSIA [None]
  - PROCEDURAL COMPLICATION [None]
  - STRESS [None]
  - SYNCOPE [None]
